FAERS Safety Report 7222659-6 (Version None)
Quarter: 2011Q1

REPORT INFORMATION
  Report Type: 
  Country: None (occurrence: None)
  Receive Date: 20110106
  Receipt Date: 20110106
  Transmission Date: 20110831
  Serious: No
  Sender: FDA-Public Use
  Company Number: None

PATIENT
  Sex: Female
  Weight: 58.0604 kg

DRUGS (1)
  1. FOSAMAX [Suspect]
     Indication: OSTEOPOROSIS
     Dosage: 70MG./ 1 TABLET PER WEEK W/WATER ORALLY
     Route: 048
     Dates: start: 20101103, end: 20101110

REACTIONS (4)
  - ARTHRALGIA [None]
  - INSOMNIA [None]
  - PAIN [None]
  - GAIT DISTURBANCE [None]
